FAERS Safety Report 12796502 (Version 2)
Quarter: 2016Q4

REPORT INFORMATION
  Report Type: Report from Study
  Country: US (occurrence: US)
  Receive Date: 20160929
  Receipt Date: 20161024
  Transmission Date: 20170207
  Serious: No
  Sender: FDA-Public Use
  Company Number: US-INCYTE CORPORATION-2016IN002505

PATIENT
  Age: 69 Year
  Sex: Male
  Weight: 90.7 kg

DRUGS (7)
  1. FARYDAK [Concomitant]
     Active Substance: PANOBINOSTAT
     Indication: POLYCYTHAEMIA VERA
     Dosage: 20 MG DAILY ON DAYS 1,3,5,15,17,19 FOR 2 WKS PER MONTH
     Dates: start: 20160412, end: 20160428
  2. JAKAFI [Suspect]
     Active Substance: RUXOLITINIB
     Indication: POLYCYTHAEMIA VERA
     Dosage: 25 MG, BID
     Route: 048
     Dates: start: 20140407, end: 20160411
  3. JAKAFI [Suspect]
     Active Substance: RUXOLITINIB
     Dosage: 15 MG, BID
     Route: 048
     Dates: start: 20160412, end: 20160508
  4. CEPHALEXIN                         /00145501/ [Concomitant]
     Active Substance: CEPHALEXIN
     Indication: CELLULITIS
     Dosage: 500 MG, BID
     Dates: start: 20160719, end: 20160728
  5. CEFTRIAXONE SODIUM. [Concomitant]
     Active Substance: CEFTRIAXONE SODIUM
     Indication: CELLULITIS
     Dosage: 500 MG, ONCE
     Dates: start: 20160719, end: 20160719
  6. BUPROPIONE [Concomitant]
     Active Substance: BUPROPION HYDROCHLORIDE
     Indication: SMOKING CESSATION THERAPY
     Dosage: 150 MG, QD
     Dates: start: 20160720, end: 20160727
  7. JAKAFI [Suspect]
     Active Substance: RUXOLITINIB
     Dosage: 25 MG, BID
     Route: 048
     Dates: start: 20160509

REACTIONS (5)
  - Blast cell count increased [Recovering/Resolving]
  - Fatigue [Recovered/Resolved]
  - Eye disorder [Recovered/Resolved]
  - Cellulitis [Recovered/Resolved]
  - Abdominal pain [Recovered/Resolved]

NARRATIVE: CASE EVENT DATE: 20160411
